FAERS Safety Report 9420968 (Version 1)
Quarter: 2013Q3

REPORT INFORMATION
  Report Type: Spontaneous
  Country: BR (occurrence: None)
  Receive Date: 20130723
  Receipt Date: 20130723
  Transmission Date: 20140515
  Serious: Yes (Other)
  Sender: FDA-Public Use
  Company Number: 7224211

PATIENT
  Age: 73 Year
  Sex: Female

DRUGS (4)
  1. LEVOTHYROXINE SODIUM [Suspect]
     Indication: HYPERTHYROIDISM
     Dates: start: 20130612, end: 20130711
  2. LOSARTAN POTASSIUM (LOSARTAN POTASSIUM) [Concomitant]
  3. ATENOLOL (ATENOLOL) (ATENOLOL) [Concomitant]
  4. HYDROCHLOROTHIAZIDE (HYDROCHLOROTHIAZIDE) (HYDROCHLOROTHIAZIDE) [Concomitant]

REACTIONS (2)
  - Blood pressure increased [None]
  - Headache [None]
